FAERS Safety Report 7404206-9 (Version None)
Quarter: 2011Q2

REPORT INFORMATION
  Report Type: 
  Country: None (occurrence: None)
  Receive Date: 20110408
  Receipt Date: 20101021
  Transmission Date: 20111010
  Serious: Yes (Hospitalization, Other)
  Sender: FDA-Public Use
  Company Number: US-BAYER-201016911NA

PATIENT
  Age: 20 Year
  Sex: Female
  Weight: 136.36 kg

DRUGS (3)
  1. YAZ [Suspect]
     Indication: MENSTRUAL CYCLE MANAGEMENT
     Route: 048
     Dates: start: 20050101, end: 20050101
  2. YASMIN [Suspect]
     Indication: MENSTRUAL CYCLE MANAGEMENT
     Route: 048
     Dates: start: 20050101, end: 20050101
  3. YASMIN [Suspect]
     Indication: ORAL CONTRACEPTION

REACTIONS (1)
  - DEEP VEIN THROMBOSIS [None]
